FAERS Safety Report 16921528 (Version 2)
Quarter: 2019Q4

REPORT INFORMATION
  Report Type: Report from Study
  Country: IT (occurrence: IT)
  Receive Date: 20191015
  Receipt Date: 20191023
  Transmission Date: 20200122
  Serious: Yes (Other)
  Sender: FDA-Public Use
  Company Number: NVSC2019IT000545

PATIENT
  Age: 37 Year
  Sex: Female

DRUGS (2)
  1. SIGNIFOR [Suspect]
     Active Substance: PASIREOTIDE
     Indication: PITUITARY-DEPENDENT CUSHING^S SYNDROME
     Dosage: 0.6 OT, BID
     Route: 058
     Dates: start: 20190211, end: 20190823
  2. SIGNIFOR [Suspect]
     Active Substance: PASIREOTIDE
     Dosage: 0.6 OT, BID
     Route: 058
     Dates: start: 20190913

REACTIONS (5)
  - Weight decreased [Unknown]
  - Adrenal insufficiency [Recovered/Resolved]
  - Nausea [Unknown]
  - Decreased appetite [Unknown]
  - Fatigue [Unknown]

NARRATIVE: CASE EVENT DATE: 20190820
